FAERS Safety Report 25982652 (Version 1)
Quarter: 2025Q4

REPORT INFORMATION
  Report Type: Spontaneous
  Country: GB (occurrence: GB)
  Receive Date: 20251031
  Receipt Date: 20251031
  Transmission Date: 20260118
  Serious: No
  Sender: ALKEM
  Company Number: None

PATIENT
  Age: 62 Year
  Sex: Male

DRUGS (1)
  1. DIMETHYL FUMARATE [Suspect]
     Active Substance: DIMETHYL FUMARATE
     Indication: Multiple sclerosis
     Dosage: UNK
     Route: 065

REACTIONS (3)
  - Hot flush [Unknown]
  - Adverse drug reaction [Unknown]
  - Erythema [Unknown]

NARRATIVE: CASE EVENT DATE: 20250529
